FAERS Safety Report 14776702 (Version 1)
Quarter: 2018Q2

REPORT INFORMATION
  Report Type: Spontaneous
  Country: FR (occurrence: FR)
  Receive Date: 20180419
  Receipt Date: 20180419
  Transmission Date: 20180711
  Serious: Yes (Other)
  Sender: FDA-Public Use
  Company Number: FR-MERCK KGAA-2046003

PATIENT
  Age: 52 Year
  Sex: Female

DRUGS (1)
  1. NOVOTHYROX [Suspect]
     Active Substance: LEVOTHYROXINE SODIUM
     Indication: PRODUCT USED FOR UNKNOWN INDICATION
     Dates: start: 201705

REACTIONS (15)
  - Fatigue [Recovering/Resolving]
  - Discomfort [Recovering/Resolving]
  - Dizziness [Recovering/Resolving]
  - Malaise [Recovering/Resolving]
  - Thyroxine free increased [None]
  - Blood 25-hydroxycholecalciferol decreased [None]
  - Loss of personal independence in daily activities [Recovering/Resolving]
  - Tension [Recovering/Resolving]
  - Blood thyroid stimulating hormone decreased [None]
  - Headache [Recovering/Resolving]
  - Tachycardia [Recovering/Resolving]
  - Pain [Recovering/Resolving]
  - Impaired work ability [Recovering/Resolving]
  - Vitamin D decreased [None]
  - Arrhythmia [Recovering/Resolving]

NARRATIVE: CASE EVENT DATE: 2017
